FAERS Safety Report 4686305-8 (Version None)
Quarter: 2005Q2

REPORT INFORMATION
  Report Type: 
  Country: None (occurrence: None)
  Receive Date: 20050606
  Receipt Date: 20050524
  Transmission Date: 20051028
  Serious: Yes (Hospitalization)
  Sender: FDA-Public Use
  Company Number: 2005079137

PATIENT
  Age: 31 Year
  Sex: Male

DRUGS (3)
  1. ATARAX [Suspect]
     Indication: ILL-DEFINED DISORDER
     Dosage: 75 MG, ORAL
     Route: 048
     Dates: start: 20050401, end: 20050504
  2. TAVEGYL (CLEMASTINE) [Suspect]
     Indication: ILL-DEFINED DISORDER
     Dosage: 2 MG, ORAL
     Route: 048
     Dates: start: 20050408, end: 20050504
  3. TALION (BEPOTASTINE BESILATE) [Suspect]
     Indication: ILL-DEFINED DISORDER
     Dosage: 20 MG, ORAL
     Route: 048
     Dates: start: 20050408, end: 20050504

REACTIONS (1)
  - TOXIC EPIDERMAL NECROLYSIS [None]
